FAERS Safety Report 12799982 (Version 2)
Quarter: 2018Q4

REPORT INFORMATION
  Report Type: Spontaneous
  Country: JP (occurrence: JP)
  Receive Date: 20160930
  Receipt Date: 20181016
  Transmission Date: 20190204
  Serious: Yes (Other)
  Sender: FDA-Public Use
  Company Number: JP-FRESENIUS KABI-FK201607294

PATIENT
  Age: 82 Year
  Sex: Male

DRUGS (3)
  1. XYLOCAINE [Concomitant]
     Active Substance: LIDOCAINE HYDROCHLORIDE
     Indication: PRODUCT USED FOR UNKNOWN INDICATION
     Route: 065
     Dates: start: 20160921, end: 20160921
  2. SEVOFLURANE MYLAN [Concomitant]
     Active Substance: SEVOFLURANE
     Indication: INDUCTION OF ANAESTHESIA
     Route: 055
     Dates: start: 20160921, end: 20160921
  3. PROPOFOL 1% FRESENIUS [Suspect]
     Active Substance: PROPOFOL
     Indication: INDUCTION OF ANAESTHESIA
     Dosage: 80 MG
     Route: 042
     Dates: start: 20160921, end: 20160921

REACTIONS (2)
  - Anaphylactic reaction [Recovered/Resolved]
  - Vital functions abnormal [Recovering/Resolving]

NARRATIVE: CASE EVENT DATE: 20160921
